FAERS Safety Report 8271543-8 (Version None)
Quarter: 2012Q2

REPORT INFORMATION
  Report Type: 
  Country: None (occurrence: None)
  Receive Date: 20120410
  Receipt Date: 20120403
  Transmission Date: 20120825
  Serious: No
  Sender: FDA-Public Use
  Company Number: US-PFIZER INC-2012085211

PATIENT
  Sex: Female

DRUGS (12)
  1. NIFEDIPINE [Concomitant]
  2. DOXEPIN [Concomitant]
     Dosage: 10 MG, 1X/DAY
  3. POTASSIUM PENICILLIN G [Suspect]
     Dosage: UNK
  4. MELATONIN [Concomitant]
     Dosage: 6 MG, AT NIGHT
  5. ACETYLSALICYLIC ACID [Concomitant]
     Dosage: 1 EVERY DAY
  6. LORAZEPAM [Concomitant]
     Dosage: 1 MG, AT NIGHT
  7. HYDROCHLOROTHIAZIDE [Concomitant]
  8. LOSARTAN [Concomitant]
  9. METFORMIN [Concomitant]
  10. LOVASTATIN [Concomitant]
  11. ATENOLOL [Concomitant]
  12. LEVOTHROID [Concomitant]

REACTIONS (2)
  - HYPERSENSITIVITY [None]
  - URTICARIA [None]
